FAERS Safety Report 6045009-X (Version None)
Quarter: 2009Q1

REPORT INFORMATION
  Report Type: 
  Country: None (occurrence: None)
  Receive Date: 20090116
  Receipt Date: 20090116
  Transmission Date: 20090719
  Serious: No
  Sender: FDA-Public Use
  Company Number: None

PATIENT
  Sex: Female

DRUGS (1)
  1. LEENA [Suspect]
     Indication: MENSTRUAL DISORDER
     Dosage: 1 TABLET DAILY
     Dates: start: 20081001, end: 20081201

REACTIONS (4)
  - DIZZINESS POSTURAL [None]
  - HEADACHE [None]
  - JOINT SWELLING [None]
  - MIGRAINE [None]
